FAERS Safety Report 18304547 (Version 1)
Quarter: 2020Q3

REPORT INFORMATION
  Report Type: Spontaneous
  Country: FR (occurrence: FR)
  Receive Date: 20200923
  Receipt Date: 20200923
  Transmission Date: 20201103
  Serious: Yes (Other)
  Sender: FDA-Public Use
  Company Number: NVSC2020FR254417

PATIENT
  Age: 70 Year
  Sex: Male

DRUGS (9)
  1. METYRAPONE [Concomitant]
     Active Substance: METYRAPONE
     Dosage: 2 MG, QD
     Route: 065
  2. OSILODROSTAT [Concomitant]
     Active Substance: OSILODROSTAT
     Dosage: 4 MG, QD FOR 4 DAYS
     Route: 065
  3. METYRAPONE [Concomitant]
     Active Substance: METYRAPONE
     Indication: PRODUCT USED FOR UNKNOWN INDICATION
     Dosage: 500 MG, QD
     Route: 065
  4. OSILODROSTAT [Concomitant]
     Active Substance: OSILODROSTAT
     Indication: PRODUCT USED FOR UNKNOWN INDICATION
     Dosage: 1 MG, QD
     Route: 065
  5. PACLITAXEL. [Suspect]
     Active Substance: PACLITAXEL
     Indication: SMALL CELL LUNG CANCER
     Dosage: UNK
     Route: 065
  6. KETOCONAZOLE. [Interacting]
     Active Substance: KETOCONAZOLE
     Indication: HYPERADRENOCORTICISM
     Dosage: 1200 MG, QD
     Route: 065
  7. OSILODROSTAT [Concomitant]
     Active Substance: OSILODROSTAT
     Dosage: 25 MG, QD AFTER 2 WEEKS
     Route: 065
  8. OSILODROSTAT [Concomitant]
     Active Substance: OSILODROSTAT
     Dosage: 6 MG, QD
     Route: 065
  9. HYDROCORTICONE [Concomitant]
     Active Substance: HYDROCORTISONE
     Indication: PRODUCT USED FOR UNKNOWN INDICATION
     Dosage: 10 MG MORNING DOSE
     Route: 065

REACTIONS (5)
  - Small cell lung cancer recurrent [Unknown]
  - Liver disorder [Unknown]
  - Drug intolerance [Unknown]
  - Drug interaction [Unknown]
  - Product use in unapproved indication [Unknown]
